FAERS Safety Report 8216848-1 (Version None)
Quarter: 2012Q1

REPORT INFORMATION
  Report Type: 
  Country: None (occurrence: None)
  Receive Date: 20120316
  Receipt Date: 20120309
  Transmission Date: 20120608
  Serious: Yes (Other)
  Sender: FDA-Public Use
  Company Number: GB-ASTRAZENECA-2012SE16407

PATIENT
  Age: 69 Year
  Sex: Female
  Weight: 56.3 kg

DRUGS (4)
  1. ASPIRIN [Concomitant]
     Dates: start: 20111209
  2. LISINOPRIL [Suspect]
     Route: 048
     Dates: start: 20120227
  3. BENDROFLUMETHIAZIDE [Concomitant]
     Dates: start: 20111010
  4. VALSARTAN [Concomitant]
     Dates: start: 20111010

REACTIONS (2)
  - CHOKING [None]
  - PHARYNGEAL OEDEMA [None]
